FAERS Safety Report 16325377 (Version 1)
Quarter: 2019Q2

REPORT INFORMATION
  Report Type: Spontaneous
  Country: US (occurrence: US)
  Receive Date: 20190516
  Receipt Date: 20190516
  Transmission Date: 20190711
  Serious: Yes (Disabling)
  Sender: FDA-Public Use
  Company Number: None

PATIENT
  Age: 51 Year
  Sex: Female
  Weight: 81 kg

DRUGS (2)
  1. GADAVIST [Suspect]
     Active Substance: GADOBUTROL
     Indication: NUCLEAR MAGNETIC RESONANCE IMAGING
     Route: 042
     Dates: start: 20190502, end: 20190502
  2. AMLODIPINE [Concomitant]
     Active Substance: AMLODIPINE BESYLATE

REACTIONS (6)
  - Fatigue [None]
  - Pain in extremity [None]
  - Gait disturbance [None]
  - Headache [None]
  - Arthralgia [None]
  - Nausea [None]

NARRATIVE: CASE EVENT DATE: 20190502
